FAERS Safety Report 7240582-8 (Version None)
Quarter: 2011Q1

REPORT INFORMATION
  Report Type: 
  Country: None (occurrence: None)
  Receive Date: 20110120
  Receipt Date: 20110120
  Transmission Date: 20110831
  Serious: Yes (Death)
  Sender: FDA-Public Use
  Company Number: None

PATIENT
  Sex: Male
  Weight: 104.3273 kg

DRUGS (2)
  1. LYRICA [Suspect]
     Indication: PARAESTHESIA
     Dosage: 100MG TID P.O.
     Route: 048
     Dates: start: 20090601, end: 20091101
  2. LYRICA [Suspect]
     Indication: LYMPHOEDEMA
     Dosage: 100MG TID P.O.
     Route: 048
     Dates: start: 20090601, end: 20091101

REACTIONS (1)
  - ADVERSE EVENT [None]
